FAERS Safety Report 6596615-5 (Version None)
Quarter: 2010Q1

REPORT INFORMATION
  Report Type: 
  Country: None (occurrence: None)
  Receive Date: 20100223
  Receipt Date: 20100218
  Transmission Date: 20100710
  Serious: Yes (Other)
  Sender: FDA-Public Use
  Company Number: JP-PFIZER INC-2009276875

PATIENT
  Age: 77 Year
  Sex: Male
  Weight: 53 kg

DRUGS (8)
  1. SILDENAFIL CITRATE [Suspect]
     Indication: PULMONARY ARTERIAL HYPERTENSION
     Dosage: 20 MG, 3X/DAY
     Route: 048
     Dates: start: 20090520, end: 20090716
  2. DORNER [Concomitant]
     Dosage: UNK
     Route: 048
     Dates: start: 20031201
  3. RENIVACE [Concomitant]
     Dosage: UNK
     Route: 048
  4. HYPOCA [Concomitant]
     Route: 048
     Dates: end: 20090617
  5. WARFARIN POTASSIUM [Concomitant]
     Dosage: UNK
     Route: 048
  6. ALLOPURINOL [Concomitant]
     Indication: HYPERURICAEMIA
     Dosage: UNK
     Route: 048
  7. URSO 250 [Concomitant]
     Dosage: UNK
     Route: 048
  8. LENDORMIN [Concomitant]
     Indication: INSOMNIA
     Dosage: UNK
     Route: 048

REACTIONS (1)
  - PULMONARY ARTERIAL PRESSURE INCREASED [None]
